FAERS Safety Report 7395037-7 (Version None)
Quarter: 2011Q1

REPORT INFORMATION
  Report Type: 
  Country: None (occurrence: None)
  Receive Date: 20110325
  Receipt Date: 20110316
  Transmission Date: 20110831
  Serious: Yes (Other)
  Sender: FDA-Public Use
  Company Number: 2011SP011926

PATIENT
  Sex: Female
  Weight: 60 kg

DRUGS (2)
  1. DIPROPHOS (BETAMETHASONE SODIUM PHOSPHATE/DIPROPIONATE/00582101/ [Suspect]
     Indication: OSTEOARTHRITIS
     Dosage: IM
     Route: 030
     Dates: start: 20101125, end: 20101125
  2. DEXKETOPROFEN (DEXKETOPROFEN) [Suspect]
     Indication: PRODUCT USED FOR UNKNOWN INDICATION
     Dates: start: 20101125, end: 20101125

REACTIONS (4)
  - APNOEA [None]
  - BLOOD PRESSURE DECREASED [None]
  - LOSS OF CONSCIOUSNESS [None]
  - LIVIDITY [None]
